FAERS Safety Report 24461965 (Version 1)
Quarter: 2024Q4

REPORT INFORMATION
  Report Type: Report from Study
  Country: US (occurrence: US)
  Receive Date: 20241018
  Receipt Date: 20241018
  Transmission Date: 20250114
  Serious: No
  Sender: ROCHE
  Company Number: US-ROCHE-3577765

PATIENT
  Age: 77 Year
  Sex: Female

DRUGS (1)
  1. RITUXAN [Suspect]
     Active Substance: RITUXIMAB
     Indication: Rheumatoid arthritis
     Dosage: DAY 1 AND DAY 15, REPEAT CYCLE Q 6 MONTHS X 1 YEAR. QTY 4-500MG VIALS
     Route: 042

REACTIONS (2)
  - Product prescribing error [Unknown]
  - No adverse event [Unknown]
